FAERS Safety Report 14032894 (Version 1)
Quarter: 2017Q4

REPORT INFORMATION
  Report Type: Spontaneous
  Country: CH (occurrence: CH)
  Receive Date: 20171003
  Receipt Date: 20171003
  Transmission Date: 20180321
  Serious: Yes (Other)
  Sender: FDA-Public Use
  Company Number: CH-ALKABELLO-2017AA001877

PATIENT
  Sex: Male

DRUGS (2)
  1. MIXED VESPID HYMENOPTERA VENOM MULTIDOSE [Suspect]
     Active Substance: DOLICHOVESPULA ARENARIA VENOM PROTEIN\DOLICHOVESPULA MACULATA VENOM PROTEIN\VESPULA GERMANICA VENOM PROTEIN\VESPULA MACULIFRONS VENOM PROTEIN\VESPULA PENSYLVANICA VENOM PROTEIN\VESPULA SQUAMOSA VENOM PROTEIN\VESPULA VULGARIS VENOM PROTEIN
  2. MIXED VESPID HYMENOPTERA VENOM MULTIDOSE [Suspect]
     Active Substance: DOLICHOVESPULA ARENARIA VENOM PROTEIN\DOLICHOVESPULA MACULATA VENOM PROTEIN\VESPULA GERMANICA VENOM PROTEIN\VESPULA MACULIFRONS VENOM PROTEIN\VESPULA PENSYLVANICA VENOM PROTEIN\VESPULA SQUAMOSA VENOM PROTEIN\VESPULA VULGARIS VENOM PROTEIN

REACTIONS (2)
  - Prostate cancer [Unknown]
  - Polyneuropathy [Unknown]
